FAERS Safety Report 12743306 (Version 1)
Quarter: 2016Q3

REPORT INFORMATION
  Report Type: Other
  Country: UA (occurrence: UA)
  Receive Date: 20160914
  Receipt Date: 20160914
  Transmission Date: 20161109
  Serious: Yes (Life-Threatening)
  Sender: FDA-Public Use
  Company Number: UA-SYMPLMED PHARMACEUTICALS-2016SYMPLMED000320

PATIENT

DRUGS (1)
  1. PRESTARIUM [Suspect]
     Active Substance: PERINDOPRIL
     Indication: HYPERTENSION
     Dosage: 5 MG, QD
     Route: 048
     Dates: start: 20121202, end: 20121202

REACTIONS (3)
  - Angioedema [Recovered/Resolved]
  - Tongue oedema [Recovered/Resolved]
  - Dyspnoea [Recovered/Resolved]

NARRATIVE: CASE EVENT DATE: 20121202
